FAERS Safety Report 9559840 (Version 1)
Quarter: 2013Q3

REPORT INFORMATION
  Report Type: Spontaneous
  Country: US (occurrence: None)
  Receive Date: 20130924
  Receipt Date: 20130924
  Transmission Date: 20140515
  Serious: Yes (Other)
  Sender: FDA-Public Use
  Company Number: 2013P1019326

PATIENT
  Age: 76 Year
  Sex: Female

DRUGS (2)
  1. ZOLEDRONIC ACID [Suspect]
     Indication: PLASMA CELL MYELOMA
     Dosage: X 27 DOSES
     Route: 042
  2. PAMIDRONATE [Suspect]
     Indication: PLASMA CELL MYELOMA
     Dosage: X 4 DOSES
     Route: 042

REACTIONS (3)
  - Osteonecrosis of jaw [None]
  - Bone loss [None]
  - Fistula [None]
